FAERS Safety Report 7372769 (Version 4)
Quarter: 2013Q1

REPORT INFORMATION
  Report Type: Spontaneous
  Country: US (occurrence: US)
  Receive Date: 20100430
  Receipt Date: 20130122
  Transmission Date: 20140127
  Serious: Yes (Hospitalization, Other)
  Sender: FDA-Public Use
  Company Number: US-ASTRAZENECA-2010SE00785

PATIENT
  Age: 76 Year
  Sex: Female

DRUGS (4)
  1. NEXIUM [Suspect]
     Route: 048
  2. TOPROL XL [Suspect]
     Route: 048
  3. CRESTOR [Suspect]
     Route: 048
  4. LISINOPRIL [Concomitant]
     Route: 048

REACTIONS (4)
  - Blood pressure increased [Unknown]
  - Cerebrovascular accident [Unknown]
  - Extrasystoles [Unknown]
  - Muscular weakness [Unknown]
